FAERS Safety Report 5423040-2 (Version None)
Quarter: 2007Q3

REPORT INFORMATION
  Report Type: 
  Country: None (occurrence: None)
  Receive Date: 20070822
  Receipt Date: 20070810
  Transmission Date: 20080115
  Serious: Yes (Other)
  Sender: FDA-Public Use
  Company Number: US-PFIZER INC-2007067918

PATIENT
  Sex: Female
  Weight: 63.5 kg

DRUGS (2)
  1. LYRICA [Suspect]
     Indication: FIBROMYALGIA
     Route: 048
  2. VALIUM [Concomitant]

REACTIONS (4)
  - ABASIA [None]
  - BALANCE DISORDER [None]
  - DYSSTASIA [None]
  - FALL [None]
